FAERS Safety Report 7170528-2 (Version None)
Quarter: 2010Q4

REPORT INFORMATION
  Report Type: 
  Country: None (occurrence: None)
  Receive Date: 20101217
  Receipt Date: 20101207
  Transmission Date: 20110411
  Serious: Yes (Death, Hospitalization, Other)
  Sender: FDA-Public Use
  Company Number: PHEH2005US03231

PATIENT
  Sex: Male
  Weight: 85.714 kg

DRUGS (41)
  1. ZOMETA [Suspect]
     Indication: PROSTATE CANCER METASTATIC
     Dosage: EVERY MONTH OVER 20 MINUTES
     Dates: start: 20021101, end: 20040916
  2. ZOMETA [Suspect]
     Dosage: 4 MG, Q3-4 WEEKS
     Route: 042
     Dates: start: 20020828, end: 20030807
  3. LIDOCAINE [Concomitant]
  4. VITAMIN TAB [Concomitant]
  5. CHEMOTHERAPEUTICS,OTHER [Concomitant]
  6. PREDNISONE [Concomitant]
     Indication: NEOPLASM MALIGNANT
     Dosage: 5 MG, BID
     Dates: start: 20041021
  7. CASODEX [Concomitant]
  8. FIBERCON [Concomitant]
     Dosage: UNK
  9. PERI-COLACE [Concomitant]
  10. VICODIN [Concomitant]
  11. DARVOCET-N 100 [Concomitant]
  12. TYLENOL (CAPLET) [Concomitant]
  13. VALIUM [Concomitant]
  14. NIFEREX FORTE [Concomitant]
     Indication: MINERAL SUPPLEMENTATION
     Dosage: 150 UNK, BID
  15. ZINC OXIDE [Concomitant]
     Indication: ECZEMA
  16. DALMANE [Concomitant]
     Indication: SLEEP DISORDER
  17. INFED [Concomitant]
  18. AMBIEN [Concomitant]
     Indication: SLEEP DISORDER
  19. EPOGEN [Concomitant]
  20. LEXAPRO [Concomitant]
     Dosage: UNK
     Dates: end: 20050401
  21. ZOCOR [Concomitant]
     Dosage: UNK
     Dates: end: 20050201
  22. DURAGESIC-100 [Concomitant]
  23. PERCOCET [Concomitant]
     Indication: PAIN
     Dosage: EVERY 4-6 HRS
  24. ATENOLOL [Concomitant]
  25. CALCIUM [Concomitant]
  26. ARANESP [Concomitant]
  27. NAPROSYN [Concomitant]
  28. ASPIRIN [Concomitant]
  29. FLEXERIL [Concomitant]
  30. DULCOLAX [Concomitant]
  31. NITROGLYCERIN ^A.L.^ [Concomitant]
     Indication: CHEST PAIN
     Dosage: PRN
  32. HEPARIN [Concomitant]
     Route: 042
  33. PROMIT [Concomitant]
  34. VERSED [Concomitant]
  35. PERSANTIN [Concomitant]
     Dosage: 75 MG, TID
  36. ASPIRIN [Concomitant]
  37. ZANTAC [Concomitant]
  38. NITROSTAT [Concomitant]
  39. LUPRON [Concomitant]
  40. STRONTIUM CHLORIDE SR-89 [Concomitant]
     Indication: PROSTATE CANCER
     Dosage: UNK
     Dates: end: 20030801
  41. RADIO-THERAPY [Concomitant]
     Dosage: UNK
     Dates: start: 20050620, end: 20050711

REACTIONS (100)
  - ABSCESS [None]
  - ABSCESS DRAINAGE [None]
  - ANAEMIA [None]
  - ANXIETY [None]
  - ATRIOVENTRICULAR BLOCK FIRST DEGREE [None]
  - BACK PAIN [None]
  - BIOPSY [None]
  - BLADDER NECK OPERATION [None]
  - BLINDNESS [None]
  - BLOOD CHOLESTEROL INCREASED [None]
  - BLOOD GLUCOSE INCREASED [None]
  - BLOOD IRON DECREASED [None]
  - BONE DISORDER [None]
  - BRONCHITIS [None]
  - CACHEXIA [None]
  - CARDIAC MURMUR [None]
  - CARDIOMEGALY [None]
  - CELLULITIS [None]
  - CEREBRAL ATROPHY [None]
  - COMPUTERISED TOMOGRAM ABNORMAL [None]
  - CONSTIPATION [None]
  - DEAFNESS [None]
  - DEBRIDEMENT [None]
  - DECREASED INTEREST [None]
  - DEFORMITY [None]
  - DEHYDRATION [None]
  - DELIRIUM [None]
  - DEPRESSION [None]
  - DERMATITIS [None]
  - DIPLOPIA [None]
  - DIZZINESS [None]
  - DYSPNOEA [None]
  - EAR TUBE INSERTION [None]
  - EATING DISORDER [None]
  - ECZEMA [None]
  - ELECTROCARDIOGRAM ABNORMAL [None]
  - EMOTIONAL DISTRESS [None]
  - ENEMA ADMINISTRATION [None]
  - ERECTILE DYSFUNCTION [None]
  - EUSTACHIAN TUBE DYSFUNCTION [None]
  - EYE SWELLING [None]
  - FAECALOMA [None]
  - FATIGUE [None]
  - FULL BLOOD COUNT ABNORMAL [None]
  - GAIT DISTURBANCE [None]
  - GENERAL PHYSICAL HEALTH DETERIORATION [None]
  - GINGIVAL ERYTHEMA [None]
  - GINGIVAL PAIN [None]
  - GINGIVAL SWELLING [None]
  - HEADACHE [None]
  - HYPERTENSION [None]
  - IMPAIRED HEALING [None]
  - INCONTINENCE [None]
  - INFECTION [None]
  - LETHARGY [None]
  - LIFE EXPECTANCY SHORTENED [None]
  - LYMPHADENOPATHY [None]
  - MALIGNANT NEOPLASM PROGRESSION [None]
  - MALNUTRITION [None]
  - MASS [None]
  - MEAN CELL VOLUME DECREASED [None]
  - MEMORY IMPAIRMENT [None]
  - METASTASES TO BONE [None]
  - METASTASES TO LUNG [None]
  - METASTASES TO MENINGES [None]
  - METASTASES TO SPINE [None]
  - MIDDLE EAR EFFUSION [None]
  - MYALGIA [None]
  - MYRINGOTOMY [None]
  - NECK PAIN [None]
  - NERVOUSNESS [None]
  - NUCLEAR MAGNETIC RESONANCE IMAGING [None]
  - OEDEMA MOUTH [None]
  - OPEN WOUND [None]
  - ORAL PAIN [None]
  - OROPHARYNGEAL PAIN [None]
  - OSTEOARTHRITIS [None]
  - OSTEOMYELITIS [None]
  - OSTEONECROSIS OF JAW [None]
  - PAIN [None]
  - PAIN IN EXTREMITY [None]
  - PAIN IN JAW [None]
  - PERIODONTITIS [None]
  - RADIATION INJURY [None]
  - SEQUESTRECTOMY [None]
  - SINUS BRADYCARDIA [None]
  - SLEEP DISORDER [None]
  - SPINAL DISORDER [None]
  - STRESS URINARY INCONTINENCE [None]
  - SWELLING [None]
  - SWELLING FACE [None]
  - TOOTH EXTRACTION [None]
  - URETHRAL DILATATION [None]
  - URETHRAL FISTULA [None]
  - URINARY RETENTION [None]
  - URINARY TRACT INFECTION [None]
  - URINARY TRACT OPERATION [None]
  - VISION BLURRED [None]
  - WEIGHT DECREASED [None]
  - WHITE BLOOD CELL COUNT DECREASED [None]
